FAERS Safety Report 17562729 (Version 2)
Quarter: 2020Q2

REPORT INFORMATION
  Report Type: Report from Study
  Country: US (occurrence: US)
  Receive Date: 20200319
  Receipt Date: 20200414
  Transmission Date: 20200713
  Serious: Yes (Hospitalization, Other)
  Sender: FDA-Public Use
  Company Number: US-ACTELION-A-NJ2020-203181

PATIENT
  Age: 59 Year
  Sex: Male
  Weight: 104.31 kg

DRUGS (3)
  1. LITHIUM. [Suspect]
     Active Substance: LITHIUM
     Indication: PRODUCT USED FOR UNKNOWN INDICATION
     Route: 065
  2. OPSUMIT [Suspect]
     Active Substance: MACITENTAN
     Indication: PULMONARY ARTERIAL HYPERTENSION
     Dosage: 10 MG, QD
     Route: 048
  3. HEPARIN [Suspect]
     Active Substance: HEPARIN SODIUM
     Indication: PRODUCT USED FOR UNKNOWN INDICATION
     Dosage: UNK
     Route: 065

REACTIONS (16)
  - Surgery [Unknown]
  - Syncope [Unknown]
  - Loss of consciousness [Unknown]
  - Dialysis [Recovered/Resolved]
  - Toxicity to various agents [Unknown]
  - Renal failure [Unknown]
  - Anaemia [Unknown]
  - Fall [Unknown]
  - Haematoma [Unknown]
  - Diplegia [Unknown]
  - Aortic aneurysm [Unknown]
  - Weight decreased [Unknown]
  - Nerve injury [Unknown]
  - Monoplegia [Unknown]
  - Device occlusion [Unknown]
  - Dyspnoea [Unknown]

NARRATIVE: CASE EVENT DATE: 202002
